FAERS Safety Report 8326412-1 (Version None)
Quarter: 2012Q2

REPORT INFORMATION
  Report Type: 
  Country: None (occurrence: None)
  Receive Date: 20120501
  Receipt Date: 20120424
  Transmission Date: 20120825
  Serious: Yes (Hospitalization)
  Sender: FDA-Public Use
  Company Number: US-MERCK-1202USA03900

PATIENT
  Age: 52 Year
  Sex: Female

DRUGS (15)
  1. FOSAMAX [Suspect]
     Indication: OSTEOPENIA
     Route: 048
     Dates: start: 20041101, end: 20071101
  2. FOSAMAX [Suspect]
     Route: 048
     Dates: start: 20110101, end: 20110801
  3. FOSAMAX [Suspect]
     Route: 048
     Dates: start: 20071201, end: 20110301
  4. HORMONES (UNSPECIFIED) [Concomitant]
     Route: 065
     Dates: start: 19760101
  5. CHONDROITIN SULFATE SODIUM AND GLUCOSAMINE SULFATE [Concomitant]
     Route: 065
  6. CALCIUM CITRATE AND VITAMIN D (UNSPECIFIED) [Concomitant]
     Route: 065
     Dates: start: 20040101
  7. BONIVA [Suspect]
     Indication: OSTEOPOROSIS
     Route: 065
     Dates: start: 20100324, end: 20110301
  8. PREMPRO [Concomitant]
     Route: 065
     Dates: start: 20040103
  9. FOSAMAX [Suspect]
     Route: 048
     Dates: start: 20110101, end: 20110801
  10. VITAMINS (UNSPECIFIED) [Concomitant]
     Route: 065
  11. OSTEO-BI-FLEX [Concomitant]
     Route: 065
  12. FOSAMAX [Suspect]
     Indication: OSTEOPOROSIS
     Route: 048
     Dates: start: 20041101, end: 20071101
  13. FOSAMAX [Suspect]
     Route: 048
     Dates: start: 20071201, end: 20110301
  14. BONIVA [Suspect]
     Indication: OSTEOPENIA
     Route: 065
     Dates: start: 20100324, end: 20110301
  15. ARBONNE BIO NUTRIA JOINT FORMULA [Concomitant]
     Route: 065

REACTIONS (4)
  - DEPRESSION [None]
  - FOOT FRACTURE [None]
  - LOW TURNOVER OSTEOPATHY [None]
  - FEMUR FRACTURE [None]
